FAERS Safety Report 4331457-2 (Version None)
Quarter: 2004Q1

REPORT INFORMATION
  Report Type: 
  Country: None (occurrence: None)
  Receive Date: 20040329
  Receipt Date: 20040323
  Transmission Date: 20041129
  Serious: Yes (Other)
  Sender: FDA-Public Use
  Company Number: 2004-03-1625

PATIENT
  Sex: Male

DRUGS (4)
  1. PEG-INTRON [Suspect]
     Indication: HEPATITIS C
     Dosage: 120 MCG QW SUBCUTANEOUS
     Route: 058
     Dates: start: 20020104, end: 20030201
  2. REBETOL [Suspect]
     Indication: HEPATITIS C
     Dosage: 1200 MG QD ORAL
     Route: 048
     Dates: start: 20020104, end: 20030201
  3. ANTIHYPERTENSIVE AGENT (NOS) [Concomitant]
  4. ASPIRIN [Concomitant]

REACTIONS (6)
  - AGGRESSION [None]
  - HOSTILITY [None]
  - LUNG DISORDER [None]
  - MOOD SWINGS [None]
  - PNEUMONIA [None]
  - THINKING ABNORMAL [None]
